FAERS Safety Report 6699765-8 (Version None)
Quarter: 2010Q2

REPORT INFORMATION
  Report Type: 
  Country: None (occurrence: None)
  Receive Date: 20100428
  Receipt Date: 20100415
  Transmission Date: 20101027
  Serious: Yes (Hospitalization)
  Sender: FDA-Public Use
  Company Number: DE-JNJFOC-20100406887

PATIENT
  Age: 56 Year
  Sex: Female
  Weight: 67 kg

DRUGS (6)
  1. TRAMADOL HYDROCHLORIDE [Suspect]
     Indication: INTERVERTEBRAL DISC PROTRUSION
     Route: 065
  2. TRAMADOL HYDROCHLORIDE [Suspect]
     Route: 065
  3. KATADOLON [Suspect]
     Indication: DRUG USE FOR UNKNOWN INDICATION
     Route: 065
  4. FLUPIRTINE [Suspect]
     Indication: DRUG USE FOR UNKNOWN INDICATION
     Dosage: 2-3 TIMES A WEEK
     Route: 065
  5. FLUPIRTINE [Suspect]
     Route: 065
  6. METOPROLOL SUCCINATE [Concomitant]

REACTIONS (1)
  - HEPATOTOXICITY [None]
